FAERS Safety Report 6634223-8 (Version None)
Quarter: 2010Q1

REPORT INFORMATION
  Report Type: 
  Country: None (occurrence: None)
  Receive Date: 20100311
  Receipt Date: 20100311
  Transmission Date: 20100710
  Serious: Yes (Hospitalization, Disabling)
  Sender: FDA-Public Use
  Company Number: None

PATIENT
  Age: 71 Year
  Sex: Female
  Weight: 58.0604 kg

DRUGS (2)
  1. FOSAMAX [Suspect]
     Indication: OSTEOPENIA
     Dosage: 1 TABLET WEEKLY PO; 7 YEARS APPROX
     Route: 048
  2. BONIVA [Suspect]
     Indication: OSTEOPENIA
     Dosage: 1 TAB MONTHLY PO
     Route: 048

REACTIONS (2)
  - FEMUR FRACTURE [None]
  - STRESS FRACTURE [None]
